FAERS Safety Report 22611583 (Version 1)
Quarter: 2023Q2

REPORT INFORMATION
  Report Type: Spontaneous
  Country: IN (occurrence: IN)
  Receive Date: 20230616
  Receipt Date: 20230616
  Transmission Date: 20230721
  Serious: Yes (Hospitalization, Other)
  Sender: FDA-Public Use
  Company Number: IN-SA-2023SA178441

PATIENT
  Age: 70 Year
  Sex: Male

DRUGS (15)
  1. TELMISARTAN [Interacting]
     Active Substance: TELMISARTAN
     Indication: Hypertension
     Dosage: TELMISARTAN 40 MG ONCE IN A DAY
  2. TELMISARTAN [Interacting]
     Active Substance: TELMISARTAN
     Dosage: DOSE WAS INCREASED TO TELMISARTAN 80 MG/DAY
  3. TELMISARTAN [Interacting]
     Active Substance: TELMISARTAN
     Dosage: DISCHARGED ON TELMISARTAN 40 MG ONCE IN A DAY
  4. RIFAMPIN [Interacting]
     Active Substance: RIFAMPIN
     Indication: Tuberculosis gastrointestinal
     Dosage: 600 MG
  5. METOPROLOL [Interacting]
     Active Substance: METOPROLOL
     Indication: Hypertension
     Dosage: 50 MG, QD
  6. METOPROLOL [Interacting]
     Active Substance: METOPROLOL
     Dosage: 100 MG, QD
  7. CLONIDINE [Interacting]
     Active Substance: CLONIDINE
     Indication: Hypertension
     Dosage: 0.3 MG, QD
  8. BENIDIPINE [Interacting]
     Active Substance: BENIDIPINE
     Indication: Hypertension
     Dosage: 8 MG, QD IN DIVIDED DOSES
  9. ISONIAZID [Concomitant]
     Active Substance: ISONIAZID
     Indication: Tuberculosis gastrointestinal
     Dosage: 300 MG
  10. ETHAMBUTOL [Concomitant]
     Active Substance: ETHAMBUTOL HYDROCHLORIDE
     Indication: Tuberculosis gastrointestinal
     Dosage: 1000 MG
  11. PYRAZINAMIDE [Concomitant]
     Active Substance: PYRAZINAMIDE
     Indication: Tuberculosis gastrointestinal
     Dosage: 1500 MG
  12. METFORMIN [Concomitant]
     Active Substance: METFORMIN HYDROCHLORIDE
     Indication: Diabetes mellitus
     Dosage: 1000 MG, BID
  13. VOGLIBOSE [Concomitant]
     Active Substance: VOGLIBOSE
     Indication: Diabetes mellitus
     Dosage: 0.2 MG, BID
  14. GLIMEPIRIDE [Concomitant]
     Active Substance: GLIMEPIRIDE
     Indication: Diabetes mellitus
     Dosage: 2 MG, BID
  15. INSULIN GLARGINE [Concomitant]
     Active Substance: INSULIN GLARGINE
     Indication: Diabetes mellitus
     Dosage: 16 U, QD

REACTIONS (2)
  - Hypertensive urgency [Recovering/Resolving]
  - Drug interaction [Recovering/Resolving]
